FAERS Safety Report 10391487 (Version 2)
Quarter: 2014Q4

REPORT INFORMATION
  Report Type: Not Available
  Country: DK (occurrence: DK)
  Receive Date: 20140818
  Receipt Date: 20141016
  Transmission Date: 20150528
  Serious: Yes (Hospitalization)
  Sender: FDA-Public Use
  Company Number: DK-MUNDIPHARMA DS AND PHARMACOVIGILANCE-GBR-2014-0020244

PATIENT
  Age: 95 Year
  Sex: Female

DRUGS (8)
  1. IMOZOP [Concomitant]
     Active Substance: ZOPICLONE
  2. FOLIMET [Concomitant]
  3. CONTALGIN UNO DEPOTKAPSLER [Suspect]
     Active Substance: MORPHINE SULFATE
     Indication: PROCEDURAL PAIN
     Dosage: 5 MG, BID
     Route: 048
     Dates: start: 20140609, end: 20140624
  4. LOSARTAN POTASSIUM. [Concomitant]
     Active Substance: LOSARTAN POTASSIUM
  5. OXAPAX [Concomitant]
     Active Substance: OXAZEPAM
  6. PARACETAMOL [Concomitant]
     Active Substance: ACETAMINOPHEN
  7. TOILAX [Concomitant]
  8. CENTYL MITE W/POTASSIUM CHLORIDE [Concomitant]

REACTIONS (4)
  - Somnolence [Not Recovered/Not Resolved]
  - Fluid intake reduced [Unknown]
  - Dehydration [Not Recovered/Not Resolved]
  - Hypophagia [Unknown]

NARRATIVE: CASE EVENT DATE: 201406
